FAERS Safety Report 12755059 (Version 2)
Quarter: 2017Q1

REPORT INFORMATION
  Report Type: Spontaneous
  Country: US (occurrence: US)
  Receive Date: 20160916
  Receipt Date: 20170224
  Transmission Date: 20170428
  Serious: No
  Sender: FDA-Public Use
  Company Number: US-RARE DISEASE THERAPEUTICS, INC.-1057374

PATIENT
  Age: 63 Year
  Sex: Female
  Weight: 81.65 kg

DRUGS (13)
  1. CYSTADANE [Suspect]
     Active Substance: BETAINE
     Dates: start: 20160719, end: 20160831
  2. VITAMIN B12 [Concomitant]
     Active Substance: CYANOCOBALAMIN
     Dates: start: 20140718
  3. VITAMIN B-COMPLEX [Concomitant]
     Active Substance: DEXPANTHENOL\NIACINAMIDE\PYRIDOXINE HYDROCHLORIDE\RIBOFLAVIN 5^-PHOSPHATE SODIUM\THIAMINE HYDROCHLORIDE
     Dates: start: 20140718
  4. CALCIUM [Concomitant]
     Active Substance: CALCIUM
     Dates: start: 20060718
  5. FOLIC ACID. [Concomitant]
     Active Substance: FOLIC ACID
     Dates: start: 20140718
  6. ARMOUR THYROID [Concomitant]
     Active Substance: THYROID, PORCINE
     Dates: start: 199107
  7. PROBIOTICS NOS [Concomitant]
     Active Substance: PROBIOTICS NOS
     Dates: start: 20060718
  8. KRILL OMEGA RED OIL [Concomitant]
     Dates: start: 20060718
  9. L-TRYPTOPHAN [Concomitant]
     Active Substance: TRYPTOPHAN
     Dates: start: 20160717
  10. MAGNESIUM [Concomitant]
     Active Substance: MAGNESIUM
     Dates: start: 20060718
  11. MELATONIN [Concomitant]
     Active Substance: MELATONIN
     Dates: start: 20160717
  12. VITAMIN D3DIETARY SUPPLEMEN DIETARY SUPPLEMENT [Concomitant]
     Active Substance: ALPHA-TOCOPHEROL\CHOLECALCIFEROL
     Dates: start: 20060718
  13. CYSTADANE [Suspect]
     Active Substance: BETAINE
     Dates: start: 20160901

REACTIONS (3)
  - Depression [Recovering/Resolving]
  - Irritability [Recovering/Resolving]
  - Libido decreased [Recovering/Resolving]

NARRATIVE: CASE EVENT DATE: 20160819
